FAERS Safety Report 8590631-X (Version None)
Quarter: 2012Q3

REPORT INFORMATION
  Report Type: 
  Country: None (occurrence: None)
  Receive Date: 20120813
  Receipt Date: 20120808
  Transmission Date: 20120928
  Serious: No
  Sender: FDA-Public Use
  Company Number: US-PFIZER INC-2012193631

PATIENT
  Sex: Male

DRUGS (2)
  1. LIPITOR [Suspect]
     Dosage: 80 MG, 1X/DAY
  2. LIPITOR [Suspect]
     Dosage: 40 MG, 1X/DAY

REACTIONS (3)
  - FEELING ABNORMAL [None]
  - DIZZINESS [None]
  - FATIGUE [None]
